FAERS Safety Report 4886608-8 (Version None)
Quarter: 2006Q1

REPORT INFORMATION
  Report Type: 
  Country: None (occurrence: None)
  Receive Date: 20060119
  Receipt Date: 20060117
  Transmission Date: 20060701
  Serious: Yes (Death, Other)
  Sender: FDA-Public Use
  Company Number: 2006-00103

PATIENT
  Age: 32 Year
  Sex: Female

DRUGS (3)
  1. VELCADE [Suspect]
     Indication: ACUTE MYELOID LEUKAEMIA
     Dosage: 1.00 MG/M2, 2/WEEK, INTRAVENOUS
     Route: 042
     Dates: start: 20060110
  2. CYTARABINE [Suspect]
     Indication: ACUTE MYELOID LEUKAEMIA
     Dosage: 1000.00 MG/M2
     Dates: start: 20060110
  3. DAUNORUBICIN HCL [Suspect]
     Indication: ACUTE MYELOID LEUKAEMIA
     Dosage: 60.00 MG/M2
     Dates: start: 20060110

REACTIONS (9)
  - CAPILLARY LEAK SYNDROME [None]
  - FATIGUE [None]
  - GENERAL PHYSICAL HEALTH DETERIORATION [None]
  - LUNG INFILTRATION [None]
  - PULMONARY TOXICITY [None]
  - PYREXIA [None]
  - RESPIRATORY FAILURE [None]
  - SKIN TOXICITY [None]
  - THERAPY NON-RESPONDER [None]
